FAERS Safety Report 4536744-0 (Version None)
Quarter: 2004Q4

REPORT INFORMATION
  Report Type: 
  Country: None (occurrence: None)
  Receive Date: 20041220
  Receipt Date: 20041207
  Transmission Date: 20050328
  Serious: Yes (Disabling)
  Sender: FDA-Public Use
  Company Number: 2004107188

PATIENT
  Age: 3 Year
  Sex: Female

DRUGS (3)
  1. ZITHROMAX [Suspect]
     Indication: COUGH
     Dosage: 100 MG (100 MG, 1 IN 1 D), ORAL
     Route: 048
     Dates: start: 20041001, end: 20041001
  2. ZITHROMAX [Suspect]
     Indication: PYREXIA
     Dosage: 100 MG (100 MG, 1 IN 1 D), ORAL
     Route: 048
     Dates: start: 20041001, end: 20041001
  3. ALL OTHER THERAPEUTIC PRODUCTS (ALL OTHER THERAPEUTIC PRODUCTS) [Concomitant]

REACTIONS (6)
  - AUDIOGRAM ABNORMAL [None]
  - DEAFNESS [None]
  - EAR PAIN [None]
  - HYPOACUSIS [None]
  - RASH [None]
  - TREATMENT NONCOMPLIANCE [None]
